FAERS Safety Report 8007345-7 (Version None)
Quarter: 2011Q4

REPORT INFORMATION
  Report Type: 
  Country: None (occurrence: None)
  Receive Date: 20111216
  Receipt Date: 20111209
  Transmission Date: 20120403
  Serious: Yes (Other)
  Sender: FDA-Public Use
  Company Number: 2011029510

PATIENT
  Age: 38 Year
  Sex: Female
  Weight: 110.2241 kg

DRUGS (15)
  1. B-COMPLEX (B-COMPLEX /01523901/) [Concomitant]
  2. IRON (IRON) [Concomitant]
  3. HIZENTRA [Suspect]
  4. CIPRO XR [Concomitant]
  5. FISH OIL (FISH OIL) [Concomitant]
  6. IMURAN [Concomitant]
  7. ACETAMINOPHEN [Concomitant]
  8. PREDNISONE TAB [Concomitant]
  9. HIZENTRA [Suspect]
     Indication: IMMUNODEFICIENCY COMMON VARIABLE
     Dosage: (16 G 1X/WEEK, INFUSED 80 ML VIA 4-6 SITES OVER 1.5-2 HOURS SUBCUTANEOUS)
     Route: 058
     Dates: start: 20110328
  10. HIZENTRA [Suspect]
     Indication: IMMUNODEFICIENCY COMMON VARIABLE
     Dosage: (16 G 1X/WEEK, INFUSED 80 ML VIA 4-6 SITES OVER 1.5-2 HOURS SUBCUTANEOUS)
     Route: 058
     Dates: start: 20110808
  11. HIZENTRA [Suspect]
     Indication: IMMUNODEFICIENCY COMMON VARIABLE
     Dosage: (16 G 1X/WEEK, INFUSED 80 ML VIA 4-6 SITES OVER 1.5-2 HOURS SUBCUTANEOUS)
     Route: 058
     Dates: start: 20111108
  12. ZITHROMAX [Concomitant]
  13. LASIX [Concomitant]
  14. ASCORBIC ACID [Concomitant]
  15. AF-IBUPROFEN (IBUPROFEN) [Concomitant]

REACTIONS (2)
  - SINUSITIS [None]
  - INFECTION [None]
